FAERS Safety Report 8597986-0 (Version None)
Quarter: 2012Q3

REPORT INFORMATION
  Report Type: 
  Country: None (occurrence: None)
  Receive Date: 20120816
  Receipt Date: 20120807
  Transmission Date: 20120928
  Serious: Yes (Hospitalization, Other)
  Sender: FDA-Public Use
  Company Number: JP-ASTRAZENECA-2012SE51596

PATIENT
  Age: 64 Year
  Sex: Female

DRUGS (5)
  1. DIGOXIN [Concomitant]
     Route: 048
  2. CRESTOR [Suspect]
     Indication: HYPERLIPIDAEMIA
     Route: 048
     Dates: start: 20100224, end: 20120718
  3. WARFARIN SODIUM [Concomitant]
     Route: 048
  4. EPADEL [Concomitant]
     Route: 048
  5. DIFLUNISAL [Concomitant]
     Route: 048

REACTIONS (1)
  - PLATELET COUNT DECREASED [None]
